FAERS Safety Report 7324096-2 (Version None)
Quarter: 2011Q1

REPORT INFORMATION
  Report Type: 
  Country: None (occurrence: None)
  Receive Date: 20110217
  Receipt Date: 20110201
  Transmission Date: 20110831
  Serious: No
  Sender: FDA-Public Use
  Company Number: 2011010014

PATIENT
  Age: 66 Year
  Sex: Male

DRUGS (9)
  1. DICYCLOMINE [Concomitant]
  2. ONSOLIS [Suspect]
     Indication: CANCER PAIN
     Dosage: SEE IMAGE: BU
     Route: 002
     Dates: start: 20091218, end: 20100208
  3. ONSOLIS [Suspect]
     Indication: CANCER PAIN
     Dosage: SEE IMAGE: BU
     Route: 002
     Dates: start: 20100208, end: 20100310
  4. ONSOLIS [Suspect]
     Indication: CANCER PAIN
     Dosage: SEE IMAGE: BU
     Route: 002
     Dates: start: 20100310
  5. FENTORA [Concomitant]
  6. ONDASETRON [Concomitant]
  7. FENTANYL [Concomitant]
  8. TARCEVA [Concomitant]
  9. FLOMAX [Concomitant]

REACTIONS (3)
  - CONDITION AGGRAVATED [None]
  - PAIN [None]
  - INCORRECT DOSE ADMINISTERED [None]
